FAERS Safety Report 11746646 (Version 1)
Quarter: 2015Q4

REPORT INFORMATION
  Report Type: Spontaneous
  Country: GB (occurrence: None)
  Receive Date: 20151116
  Receipt Date: 20151116
  Transmission Date: 20160304
  Serious: No
  Sender: FDA-Public Use
  Company Number: GB2015K6899SPO

PATIENT
  Age: 68 Year
  Sex: Male

DRUGS (7)
  1. LANSOPRAZOLE GENERIC (LANSOPRAZOLE) UNKNOWN [Suspect]
     Active Substance: LANSOPRAZOLE
  2. APIXABAN [Concomitant]
     Active Substance: APIXABAN
  3. RAMIPRIL WORLD (RAMIPRIL) UNKNOWN [Suspect]
     Active Substance: RAMIPRIL
  4. ISOSORBIDE MONONITRATE. [Concomitant]
     Active Substance: ISOSORBIDE MONONITRATE
  5. SIMVASTATIN WORLD (SIMVASTATIN) [Suspect]
     Active Substance: SIMVASTATIN
  6. BISOPROLOL [Concomitant]
     Active Substance: BISOPROLOL
  7. AMIODARONE WORLD (AMIODARONE HYDROCHLORIDE) UNKNOWN [Suspect]
     Active Substance: AMIODARONE

REACTIONS (1)
  - Hirsutism [None]
